FAERS Safety Report 13286397 (Version 4)
Quarter: 2017Q2

REPORT INFORMATION
  Report Type: Spontaneous
  Country: US (occurrence: US)
  Receive Date: 20170301
  Receipt Date: 20170605
  Transmission Date: 20170830
  Serious: No
  Sender: FDA-Public Use
  Company Number: US-PFIZER INC-2017086116

PATIENT
  Age: 68 Year
  Sex: Female

DRUGS (3)
  1. IBRANCE [Suspect]
     Active Substance: PALBOCICLIB
     Dosage: 100 MG, UNK
     Dates: start: 20170526
  2. IBRANCE [Suspect]
     Active Substance: PALBOCICLIB
     Dosage: 125 MG, UNK
     Dates: start: 20170216, end: 20170516
  3. FASLODEX [Suspect]
     Active Substance: FULVESTRANT
     Dosage: UNK

REACTIONS (19)
  - Pain [Unknown]
  - Nausea [Unknown]
  - Sneezing [Unknown]
  - Fatigue [Unknown]
  - Insomnia [Unknown]
  - Dyspepsia [Unknown]
  - Depression [Unknown]
  - Breast swelling [Unknown]
  - Muscle spasms [Unknown]
  - Arthritis [Unknown]
  - Arthralgia [Unknown]
  - Hyperhidrosis [Unknown]
  - Headache [Unknown]
  - Constipation [Unknown]
  - Dysphonia [Unknown]
  - Hot flush [Unknown]
  - Limb discomfort [Unknown]
  - Musculoskeletal discomfort [Unknown]
  - Corneal erosion [Unknown]
